FAERS Safety Report 10047807 (Version 2)
Quarter: 2014Q2

REPORT INFORMATION
  Report Type: Spontaneous
  Country: US (occurrence: None)
  Receive Date: 20140327
  Receipt Date: 20140415
  Transmission Date: 20141212
  Serious: Yes (Other)
  Sender: FDA-Public Use
  Company Number: 2014-US-003099

PATIENT
  Age: 42 Year
  Sex: Female

DRUGS (3)
  1. XYREM [Suspect]
     Indication: NARCOLEPSY
     Route: 048
     Dates: start: 201211
  2. NORTRIPTYLINE HCL (NORTRIPTYLINE HYDROCHLORIDE) [Concomitant]
  3. PRAMIPEXOLE DIHYDROCHLORIDE (PRAMIPEXOLE DIHYDROCHLORIDE) PATCH [Concomitant]

REACTIONS (2)
  - Ovarian cyst [None]
  - Hysterectomy [None]
